FAERS Safety Report 8062571-6 (Version None)
Quarter: 2012Q1

REPORT INFORMATION
  Report Type: 
  Country: None (occurrence: None)
  Receive Date: 20120118
  Receipt Date: 20120105
  Transmission Date: 20120608
  Serious: Yes (Hospitalization)
  Sender: FDA-Public Use
  Company Number: 2012AP000033

PATIENT
  Age: 45 Year
  Sex: Male

DRUGS (3)
  1. HEPARIN [Suspect]
     Indication: ANTIPLATELET THERAPY
     Dosage: IV
     Route: 042
  2. ASPIRIN [Suspect]
     Indication: ANTIPLATELET THERAPY
     Dosage: 325 MG;1X ; 325 MG;QD
  3. CLOPIDOGREL [Suspect]
     Indication: ANTIPLATELET THERAPY
     Dosage: 600 MG;1X ; 75 MG;QD ; 600 MG;1X ; 75 MG;BID

REACTIONS (4)
  - ACUTE MYOCARDIAL INFARCTION [None]
  - THROMBOSIS IN DEVICE [None]
  - HYPOTENSION [None]
  - DRUG RESISTANCE [None]
